FAERS Safety Report 20541515 (Version 1)
Quarter: 2022Q1

REPORT INFORMATION
  Report Type: Spontaneous
  Country: CZ (occurrence: CZ)
  Receive Date: 20220302
  Receipt Date: 20220302
  Transmission Date: 20220424
  Serious: Yes (Other)
  Sender: FDA-Public Use
  Company Number: CZ-PFIZER INC-202200312175

PATIENT
  Age: 55 Year
  Sex: Male
  Weight: 108 kg

DRUGS (8)
  1. INLYTA [Suspect]
     Active Substance: AXITINIB
     Indication: Clear cell renal cell carcinoma
     Dosage: INLYTA 5 MG 2X1 TBL DAILY (IN 12-HOUR INTERVALS) WITH OR WITHOUT FOOD 5 MG TWICE A DAY
     Dates: start: 202107
  2. BAVENCIO [Suspect]
     Active Substance: AVELUMAB
     Indication: Clear cell renal cell carcinoma
     Dosage: BAVENCIO 800 MG I.V. OVER 60 MINUTES EVERY 2 WEEKS
     Route: 042
     Dates: start: 202107
  3. BISOPROLOL FUMARATE\PERINDOPRIL ARGININE [Concomitant]
     Active Substance: BISOPROLOL FUMARATE\PERINDOPRIL ARGININE
     Dosage: 5 MG TBL, ONE IN THE MORNING
  4. ROSUVASTATIN CALCIUM [Concomitant]
     Active Substance: ROSUVASTATIN CALCIUM
     Dosage: ONE IN THE MORNING
  5. ALLOPURINOL [Concomitant]
     Active Substance: ALLOPURINOL
     Dosage: ONE IN THE MORNING
  6. INDAPAMIDE [Concomitant]
     Active Substance: INDAPAMIDE
     Dosage: 1.5 MG TBL, ONE IN THE MORNING
  7. GLUCOPHAGE [Concomitant]
     Active Substance: METFORMIN HYDROCHLORIDE
     Dosage: 500 MG TBL ONE IN THE MORNING, ONE IN THE EVENING
  8. ULTIBRO BREEZHALER [INDACATEROL MALEATE] [Concomitant]
     Dosage: INHALATION OF 1 CAPSULE

REACTIONS (7)
  - Hypothyroidism [Unknown]
  - Hypersensitivity [Recovered/Resolved]
  - Chills [Recovered/Resolved]
  - Palmar-plantar erythrodysaesthesia syndrome [Unknown]
  - Hypertension [Unknown]
  - Blood lactate dehydrogenase increased [Unknown]
  - Transaminases increased [Unknown]

NARRATIVE: CASE EVENT DATE: 20210901
